FAERS Safety Report 13473071 (Version 2)
Quarter: 2017Q2

REPORT INFORMATION
  Report Type: Spontaneous
  Country: US (occurrence: US)
  Receive Date: 20170424
  Receipt Date: 20170526
  Transmission Date: 20170830
  Serious: Yes (Other)
  Sender: FDA-Public Use
  Company Number: US-BAYER-2017-077018

PATIENT
  Age: 37 Year
  Weight: 64.85 kg

DRUGS (1)
  1. MIRENA [Suspect]
     Active Substance: LEVONORGESTREL
     Indication: CONTRACEPTION
     Dosage: 20 MCG/24HR, CONT
     Route: 015
     Dates: start: 20170331, end: 20170427

REACTIONS (4)
  - Device difficult to use [None]
  - Uterine perforation [Recovered/Resolved]
  - Device issue [None]
  - Pain [Recovered/Resolved]

NARRATIVE: CASE EVENT DATE: 20170404
